FAERS Safety Report 25173724 (Version 7)
Quarter: 2025Q4

REPORT INFORMATION
  Report Type: Spontaneous
  Country: JP (occurrence: JP)
  Receive Date: 20250408
  Receipt Date: 20251107
  Transmission Date: 20260118
  Serious: Yes (Hospitalization, Other)
  Sender: MERCK SHARP & DOHME LLC
  Company Number: JP-MSD-M2024-54494

PATIENT
  Age: 6 Decade
  Sex: Female

DRUGS (3)
  1. KEYTRUDA [Suspect]
     Active Substance: PEMBROLIZUMAB
     Indication: Uterine cancer
     Dosage: DOSE DESCRIPTION : 200 MILLIGRAM, Q3W?DAILY DOSE : 9.4 MILLIGRAM?REGIMEN DOSE : 200  MILLIGRAM
     Route: 041
     Dates: start: 20241129
  2. LENVIMA [Suspect]
     Active Substance: LENVATINIB
     Indication: Uterine cancer
     Route: 048
     Dates: start: 20241129
  3. LENVIMA [Suspect]
     Active Substance: LENVATINIB
     Indication: Uterine cancer
     Dosage: DOSE REDUCED TO 10 MG
     Route: 048

REACTIONS (7)
  - Diabetes mellitus inadequate control [Unknown]
  - Tonsillitis [Recovered/Resolved]
  - Stomatitis [Recovered/Resolved]
  - Dermatitis [Unknown]
  - Hypothyroidism [Unknown]
  - Hand dermatitis [Unknown]
  - Vulvitis [Unknown]

NARRATIVE: CASE EVENT DATE: 20240101
